FAERS Safety Report 11874536 (Version 1)
Quarter: 2015Q4

REPORT INFORMATION
  Report Type: Spontaneous
  Country: US (occurrence: US)
  Receive Date: 20151229
  Receipt Date: 20151229
  Transmission Date: 20160305
  Serious: No
  Sender: FDA-Public Use
  Company Number: US-009507513-1512USA013355

PATIENT

DRUGS (1)
  1. EMEND [Suspect]
     Active Substance: APREPITANT
     Indication: PROPHYLAXIS OF NAUSEA AND VOMITING
     Dosage: 150 MG INFUSION, ONCE
     Route: 042
     Dates: start: 201512

REACTIONS (2)
  - Product preparation error [Unknown]
  - Infusion site pain [Unknown]

NARRATIVE: CASE EVENT DATE: 201512
